FAERS Safety Report 5897572-7 (Version None)
Quarter: 2008Q3

REPORT INFORMATION
  Report Type: 
  Country: None (occurrence: None)
  Receive Date: 20080829
  Receipt Date: 20080522
  Transmission Date: 20090109
  Serious: Yes (Other)
  Sender: FDA-Public Use
  Company Number: 2008-GWUS-0339

PATIENT
  Sex: Female
  Weight: 50.8029 kg

DRUGS (10)
  1. TAMBOCOR [Suspect]
     Indication: ATRIAL FIBRILLATION
     Dosage: ORAL
     Route: 048
     Dates: start: 19970101, end: 20010101
  2. LANOXIN [Concomitant]
  3. METOPROLOL (TOPROL) [Concomitant]
  4. COUMADIN [Concomitant]
  5. ASPIRIN [Concomitant]
  6. ACETAMINOPHEN AND CODEINE PHOSPHATE [Concomitant]
  7. CALTRATE [Concomitant]
  8. FISH OIL [Concomitant]
  9. FLAXSEED OIL [Concomitant]
  10. CENTRUM SILVER [Concomitant]

REACTIONS (1)
  - NEUROPATHY PERIPHERAL [None]
